FAERS Safety Report 4761127-8 (Version None)
Quarter: 2005Q3

REPORT INFORMATION
  Report Type: 
  Country: None (occurrence: None)
  Receive Date: 20050902
  Receipt Date: 20050902
  Transmission Date: 20060218
  Serious: Yes (Hospitalization, Disabling)
  Sender: FDA-Public Use
  Company Number: None

PATIENT
  Age: 26 Year
  Sex: Female
  Weight: 74.8435 kg

DRUGS (1)
  1. EFFEXOR XR [Suspect]
     Indication: DEPRESSION
     Dosage: 75 MG  1 X PER DAY      PO
     Route: 048
     Dates: start: 20040301, end: 20050820

REACTIONS (7)
  - AGITATION [None]
  - EAR PAIN [None]
  - IMPAIRED WORK ABILITY [None]
  - MYDRIASIS [None]
  - NECK PAIN [None]
  - PAIN IN JAW [None]
  - SUICIDAL IDEATION [None]
